FAERS Safety Report 12336172 (Version 1)
Quarter: 2016Q2

REPORT INFORMATION
  Report Type: Spontaneous
  Country: US (occurrence: US)
  Receive Date: 20160505
  Receipt Date: 20160505
  Transmission Date: 20160815
  Serious: No
  Sender: FDA-Public Use
  Company Number: US-PFIZER INC-2016234971

PATIENT
  Age: 55 Year
  Sex: Female

DRUGS (1)
  1. IBRANCE [Suspect]
     Active Substance: PALBOCICLIB
     Dosage: 100 MG, 1 CAPSULE ONCE DAILY FOR 21 DAYS ON THEN 7DAYS OFF
     Route: 048
     Dates: start: 201602

REACTIONS (2)
  - Drug dose omission [Unknown]
  - White blood cell count decreased [Unknown]
